FAERS Safety Report 20788320 (Version 1)
Quarter: 2022Q2

REPORT INFORMATION
  Report Type: Spontaneous
  Country: US (occurrence: US)
  Receive Date: 20220505
  Receipt Date: 20220505
  Transmission Date: 20220721
  Serious: Yes (Other)
  Sender: FDA-Public Use
  Company Number: US-009507513-2001USA001748

PATIENT
  Sex: Male
  Weight: 72.57 kg

DRUGS (3)
  1. REMERON [Suspect]
     Active Substance: MIRTAZAPINE
     Dosage: 30 MILLIGRAM, P.O QHS
     Route: 048
     Dates: start: 20050101
  2. REMERON [Suspect]
     Active Substance: MIRTAZAPINE
     Dosage: 45 MILLIGRAM, P.O QHS
     Route: 048
     Dates: start: 20050315
  3. ATARAX [Suspect]
     Active Substance: HYDROXYZINE HYDROCHLORIDE
     Dosage: 25 MILLIGRAM, TID
     Route: 048
     Dates: start: 20050713

REACTIONS (12)
  - Intentional self-injury [Unknown]
  - Suicidal ideation [Unknown]
  - Hallucination, auditory [Unknown]
  - Substance use disorder [Unknown]
  - Gynaecomastia [Not Recovered/Not Resolved]
  - Alcohol use disorder [Unknown]
  - Personality disorder [Unknown]
  - Anxiety disorder [Unknown]
  - Depression [Unknown]
  - Memory impairment [Unknown]
  - Disturbance in attention [Unknown]
  - Sexually transmitted disease [Unknown]

NARRATIVE: CASE EVENT DATE: 20050126
